FAERS Safety Report 21634395 (Version 1)
Quarter: 2022Q4

REPORT INFORMATION
  Report Type: Report from Study
  Country: US (occurrence: US)
  Receive Date: 20221123
  Receipt Date: 20221123
  Transmission Date: 20230113
  Serious: Yes (Other)
  Sender: FDA-Public Use
  Company Number: US-GILEAD-2022-0600003

PATIENT
  Age: 52 Year
  Sex: Male
  Weight: 87 kg

DRUGS (8)
  1. AMBRISENTAN [Suspect]
     Active Substance: AMBRISENTAN
     Indication: Pulmonary arterial hypertension
     Dosage: 10 MG
     Route: 065
  2. AMBRISENTAN [Suspect]
     Active Substance: AMBRISENTAN
     Dosage: 5 MG
     Route: 065
  3. REMODULIN [Suspect]
     Active Substance: TREPROSTINIL
     Indication: Pulmonary arterial hypertension
     Dosage: 0.098 UG/KG/CONTINUOUS
     Route: 058
     Dates: start: 20180208
  4. REMODULIN [Suspect]
     Active Substance: TREPROSTINIL
     Dosage: 10 MG
     Route: 065
     Dates: start: 20180208
  5. REMODULIN [Suspect]
     Active Substance: TREPROSTINIL
     Dosage: 5 MG
     Route: 065
  6. REMODULIN [Suspect]
     Active Substance: TREPROSTINIL
     Dosage: 0.1029 ?G/KG
     Route: 058
  7. VASOPRESSIN [Suspect]
     Active Substance: VASOPRESSIN
     Indication: Product used for unknown indication
     Route: 065
  8. OPSUMIT [Concomitant]
     Active Substance: MACITENTAN

REACTIONS (5)
  - Disease progression [Unknown]
  - Weight fluctuation [Unknown]
  - Infusion site pain [Recovered/Resolved]
  - Dyspnoea exertional [Unknown]
  - Condition aggravated [Unknown]
